FAERS Safety Report 7618399-1 (Version None)
Quarter: 2011Q3

REPORT INFORMATION
  Report Type: 
  Country: None (occurrence: None)
  Receive Date: 20110718
  Receipt Date: 20110708
  Transmission Date: 20111222
  Serious: Yes (Hospitalization)
  Sender: FDA-Public Use
  Company Number: PHHO2011KR10993

PATIENT
  Sex: Female
  Weight: 54.9 kg

DRUGS (3)
  1. TASIGNA [Suspect]
     Indication: CHRONIC MYELOID LEUKAEMIA
     Dosage: 800 MG, DAILY
     Route: 048
     Dates: start: 20110614, end: 20110622
  2. MORPHINE [Concomitant]
  3. ITRACONAZOLE [Concomitant]

REACTIONS (4)
  - ASPARTATE AMINOTRANSFERASE INCREASED [None]
  - ALANINE AMINOTRANSFERASE INCREASED [None]
  - ILEUS [None]
  - MUCOSAL INFLAMMATION [None]
